FAERS Safety Report 23500881 (Version 2)
Quarter: 2024Q1

REPORT INFORMATION
  Report Type: Spontaneous
  Country: JP (occurrence: JP)
  Receive Date: 20240208
  Receipt Date: 20240213
  Transmission Date: 20240410
  Serious: Yes (Other)
  Sender: FDA-Public Use
  Company Number: JP-AMGEN-JPNSP2024025566

PATIENT
  Sex: Female

DRUGS (1)
  1. EVENITY [Suspect]
     Active Substance: ROMOSOZUMAB-AQQG
     Indication: Product used for unknown indication
     Dosage: 210 MILLIGRAM, QMO
     Route: 058
     Dates: start: 202309

REACTIONS (4)
  - Thoracic vertebral fracture [Unknown]
  - Barrett^s oesophagus [Unknown]
  - Head discomfort [Unknown]
  - Brain fog [Unknown]

NARRATIVE: CASE EVENT DATE: 20230101
